FAERS Safety Report 7678098-7 (Version None)
Quarter: 2011Q3

REPORT INFORMATION
  Report Type: 
  Country: None (occurrence: None)
  Receive Date: 20110811
  Receipt Date: 20110801
  Transmission Date: 20111222
  Serious: Yes (Hospitalization)
  Sender: FDA-Public Use
  Company Number: US-JNJFOC-20070503121

PATIENT
  Sex: Female
  Weight: 48.6 kg

DRUGS (7)
  1. INFLIXIMAB [Suspect]
     Route: 042
     Dates: start: 20061008
  2. MESALAMINE [Concomitant]
     Route: 048
  3. METRONIDAZOLE [Concomitant]
  4. INFLIXIMAB [Suspect]
     Indication: COLITIS ULCERATIVE
     Dosage: TOTAL 5 DOSES
     Route: 042
     Dates: start: 20070109, end: 20070109
  5. INFLIXIMAB [Suspect]
     Route: 042
     Dates: start: 20061008
  6. CIPROFLOXACIN [Concomitant]
  7. INFLIXIMAB [Suspect]
     Indication: COLITIS
     Dosage: TOTAL 5 DOSES
     Route: 042
     Dates: start: 20070109, end: 20070109

REACTIONS (2)
  - POST PROCEDURAL CELLULITIS [None]
  - COLOSTOMY CLOSURE [None]
